FAERS Safety Report 5148560-X (Version None)
Quarter: 2006Q4

REPORT INFORMATION
  Report Type: 
  Country: None (occurrence: None)
  Receive Date: 20061106
  Receipt Date: 20061030
  Transmission Date: 20070319
  Serious: Yes (Hospitalization)
  Sender: FDA-Public Use
  Company Number: EM2006-0621

PATIENT
  Age: 40 Year
  Sex: Male

DRUGS (8)
  1. MACROLIN [Suspect]
     Indication: HIV INFECTION
     Dosage: IV
     Route: 042
     Dates: start: 20001016, end: 20021029
  2. BACTRIM [Suspect]
     Indication: HIV INFECTION
     Dates: start: 19961015
  3. VIDEX [Suspect]
     Indication: HIV INFECTION
     Dates: start: 19980804, end: 20030819
  4. ZERIT [Suspect]
     Indication: HIV INFECTION
     Dates: start: 19980804, end: 20030617
  5. LOPINAVIR (LOPINAVIR) [Suspect]
     Indication: HIV INFECTION
     Dates: start: 20011117, end: 20030617
  6. RITONAVIR (RITONAVIR) [Suspect]
     Indication: HIV INFECTION
     Dates: start: 20011117, end: 20030617
  7. ABACAVIR [Suspect]
     Indication: HIV INFECTION
     Dates: start: 20030617
  8. LAMIVUDINE AND ZIDOVUDINE [Suspect]
     Indication: HIV INFECTION
     Dates: start: 20030617

REACTIONS (5)
  - CONDITION AGGRAVATED [None]
  - EXTRANODAL MARGINAL ZONE B-CELL LYMPHOMA (MALT TYPE) [None]
  - GASTROINTESTINAL DISORDER [None]
  - HELICOBACTER PYLORI IDENTIFICATION TEST POSITIVE [None]
  - HIV INFECTION CDC CATEGORY B3 [None]
